FAERS Safety Report 9516743 (Version 1)
Quarter: 2013Q3

REPORT INFORMATION
  Report Type: Report from Study
  Country: US (occurrence: US)
  Receive Date: 20130911
  Receipt Date: 20130911
  Transmission Date: 20140515
  Serious: Yes (Hospitalization)
  Sender: FDA-Public Use
  Company Number: US-ROCHE-1272849

PATIENT
  Age: 47 Year
  Sex: Male
  Weight: 98 kg

DRUGS (7)
  1. RIBAVIRIN [Suspect]
     Indication: HEPATITIS C
     Route: 048
     Dates: start: 20130530, end: 20130822
  2. PEG-INTERFERON ALFA 2A [Suspect]
     Indication: HEPATITIS C
     Route: 058
     Dates: start: 20130530, end: 20130822
  3. SOFOSBUVIR [Suspect]
     Indication: HEPATITIS C
     Route: 048
     Dates: start: 20130530, end: 20130822
  4. IBUPROFEN [Concomitant]
     Route: 065
     Dates: start: 201202
  5. AMBIEN [Concomitant]
     Route: 065
     Dates: start: 20120705
  6. XIFAXAN [Concomitant]
     Route: 065
     Dates: start: 20130705
  7. XANAX [Concomitant]
     Route: 065
     Dates: start: 2012

REACTIONS (1)
  - Delirium [Unknown]
